FAERS Safety Report 14870414 (Version 3)
Quarter: 2023Q2

REPORT INFORMATION
  Report Type: Spontaneous
  Country: FR (occurrence: FR)
  Receive Date: 20180509
  Receipt Date: 20230524
  Transmission Date: 20230722
  Serious: Yes (Hospitalization, Disabling, Other)
  Sender: FDA-Public Use
  Company Number: None

PATIENT
  Age: 36 Year
  Sex: Male

DRUGS (6)
  1. IOPAMIRON [Suspect]
     Active Substance: IOPAMIDOL
     Indication: Discogram
     Dosage: 10 ML,1X
     Dates: start: 20170626, end: 20170626
  2. PREDNISOLONE ACETATE [Suspect]
     Active Substance: PREDNISOLONE ACETATE
     Indication: Back pain
     Dosage: 1 ML, SINGLE
     Route: 024
     Dates: start: 20170626, end: 20170626
  3. XYLOCAINE                          /00033402/ [Concomitant]
     Indication: Local anaesthesia
     Dosage: 10 DF, QD
     Route: 058
     Dates: start: 20170626, end: 20170626
  4. XYLOCAINE                          /00033402/ [Concomitant]
     Indication: Local anaesthesia
     Dosage: 10 DF, QD
     Route: 058
     Dates: start: 20170627, end: 20170627
  5. LACTULOSE\PARAFFIN [Concomitant]
     Active Substance: LACTULOSE\PARAFFIN
     Dosage: UNK,1 BOX PER MONTH,
  6. PREGABALIN [Concomitant]
     Active Substance: PREGABALIN
     Dosage: UNK,2 TABLETS PER DAY FOR A

REACTIONS (10)
  - Paraplegia [Not Recovered/Not Resolved]
  - Spinal cord ischaemia [Unknown]
  - Paraplegia [Not Recovered/Not Resolved]
  - Sensory loss [Not Recovered/Not Resolved]
  - Burning sensation [Not Recovered/Not Resolved]
  - Pelvic pain [Unknown]
  - Spinal pain [Unknown]
  - Motor dysfunction [Not Recovered/Not Resolved]
  - Pain in extremity [Unknown]
  - Bladder dysfunction [Not Recovered/Not Resolved]

NARRATIVE: CASE EVENT DATE: 20170627
